FAERS Safety Report 11158627 (Version 1)
Quarter: 2015Q2

REPORT INFORMATION
  Report Type: Spontaneous
  Country: US (occurrence: None)
  Receive Date: 20150602
  Receipt Date: 20150602
  Transmission Date: 20150821
  Serious: Yes (Hospitalization)
  Sender: FDA-Public Use
  Company Number: None

PATIENT
  Age: 94 Year
  Sex: Male
  Weight: 66.4 kg

DRUGS (2)
  1. METOPROLOL [Suspect]
     Active Substance: METOPROLOL
     Indication: HYPERTENSION
     Route: 048
     Dates: start: 20140228, end: 20150303
  2. ALSKIREN/AMLODIPINE [Suspect]
     Active Substance: ALISKIREN\AMLODIPINE
     Indication: HYPERTENSION
     Route: 048
     Dates: start: 20140228, end: 20150303

REACTIONS (3)
  - Presyncope [None]
  - Hypotension [None]
  - Bradycardia [None]

NARRATIVE: CASE EVENT DATE: 20150303
